FAERS Safety Report 5930359-5 (Version None)
Quarter: 2008Q4

REPORT INFORMATION
  Report Type: 
  Country: None (occurrence: None)
  Receive Date: 20081023
  Receipt Date: 20081015
  Transmission Date: 20090506
  Serious: Yes (Hospitalization)
  Sender: FDA-Public Use
  Company Number: 2008SP002561

PATIENT
  Age: 47 Year
  Sex: Female
  Weight: 56 kg

DRUGS (5)
  1. ESZOPICLONE (ESZOPICLONE) [Suspect]
     Indication: DEPRESSION
     Dosage: 3 MG; HS; ORAL; HS; ORAL
     Route: 048
     Dates: start: 20080619, end: 20081006
  2. ESZOPICLONE (ESZOPICLONE) [Suspect]
     Indication: DEPRESSION
     Dosage: 3 MG; HS; ORAL; HS; ORAL
     Route: 048
     Dates: start: 20081008
  3. VENLAFAXINE HCL [Suspect]
     Indication: DEPRESSION
     Dosage: HS; ORAL
     Route: 048
  4. . [Concomitant]
  5. . [Concomitant]

REACTIONS (1)
  - PARALYSIS [None]
